FAERS Safety Report 8504163-8 (Version None)
Quarter: 2012Q3

REPORT INFORMATION
  Report Type: 
  Country: None (occurrence: None)
  Receive Date: 20120711
  Receipt Date: 20120703
  Transmission Date: 20120928
  Serious: No
  Sender: FDA-Public Use
  Company Number: US-009507513-1207USA000426

PATIENT

DRUGS (3)
  1. VICTRELIS [Suspect]
     Indication: HEPATITIS C
     Dosage: 800 MG, Q8H
     Route: 048
     Dates: start: 20120514
  2. RIBAVIRIN [Suspect]
     Dosage: 1 DF, BID
  3. PEGASYS [Suspect]
     Dosage: 180 MICROGRAM, QW
     Route: 058

REACTIONS (2)
  - DYSPEPSIA [None]
  - INSOMNIA [None]
